FAERS Safety Report 9451025 (Version 2)
Quarter: 2013Q3

REPORT INFORMATION
  Report Type: Report from Study
  Country: US (occurrence: US)
  Receive Date: 20130809
  Receipt Date: 20130816
  Transmission Date: 20140515
  Serious: Yes (Hospitalization)
  Sender: FDA-Public Use
  Company Number: US-ABBOTT-13P-163-1128302-00

PATIENT
  Age: 26 Year
  Sex: Male
  Weight: 70.37 kg

DRUGS (6)
  1. HUMIRA [Suspect]
     Indication: CROHN^S DISEASE
     Dates: start: 201301, end: 201301
  2. HUMIRA [Suspect]
     Dates: start: 201301, end: 201301
  3. HUMIRA [Suspect]
     Dates: end: 201302
  4. HUMIRA [Suspect]
     Dates: start: 201304
  5. AMITRIPTYLINE [Concomitant]
     Indication: PRODUCT USED FOR UNKNOWN INDICATION
  6. MERCAPTOPURINE [Concomitant]
     Indication: PRODUCT USED FOR UNKNOWN INDICATION

REACTIONS (2)
  - Intestinal stenosis [Recovered/Resolved]
  - Postoperative wound infection [Recovered/Resolved]
